FAERS Safety Report 13309467 (Version 1)
Quarter: 2017Q1

REPORT INFORMATION
  Report Type: Spontaneous
  Country: US (occurrence: US)
  Receive Date: 20170309
  Receipt Date: 20170309
  Transmission Date: 20170428
  Serious: Yes (Hospitalization, Other)
  Sender: FDA-Public Use
  Company Number: US-ACORDA-ACO_134773_2017

PATIENT
  Age: 53 Year

DRUGS (2)
  1. AMPYRA [Suspect]
     Active Substance: DALFAMPRIDINE
     Indication: PRODUCT USED FOR UNKNOWN INDICATION
     Dosage: UNK
     Route: 065
  2. TYSABRI [Suspect]
     Active Substance: NATALIZUMAB
     Indication: MULTIPLE SCLEROSIS
     Dosage: UNK
     Route: 065
     Dates: start: 201501

REACTIONS (10)
  - Condition aggravated [Unknown]
  - Fall [Unknown]
  - Fatigue [Unknown]
  - Contraindicated product administered [Recovered/Resolved]
  - Aura [Recovered/Resolved]
  - Migraine with aura [Unknown]
  - Seizure [Recovered/Resolved]
  - Quadrantanopia [Unknown]
  - Gait disturbance [Unknown]
  - Major depression [Unknown]

NARRATIVE: CASE EVENT DATE: 201612
